FAERS Safety Report 20081832 (Version 2)
Quarter: 2021Q4

REPORT INFORMATION
  Report Type: Spontaneous
  Country: DE (occurrence: DE)
  Receive Date: 20211117
  Receipt Date: 20211122
  Transmission Date: 20220304
  Serious: Yes (Hospitalization)
  Sender: FDA-Public Use
  Company Number: DE-ADRED-07267-01

PATIENT
  Age: 79 Year
  Sex: Female
  Weight: 68 kg

DRUGS (13)
  1. AZACITIDINE [Suspect]
     Active Substance: AZACITIDINE
     Indication: Product used for unknown indication
     Dosage: UNK(AMPULLEN)
     Route: 058
  2. ALLOPURINOL [Concomitant]
     Active Substance: ALLOPURINOL
     Dosage: 300 MILLIGRAM(300 MG, 0.5-0-0-0, TABLETTEN)
     Route: 048
  3. OPIPRAMOL [Concomitant]
     Active Substance: OPIPRAMOL
     Dosage: 50 MILLIGRAM, QD(50 MG, 0-0-1-0, TABLETTEN)
     Route: 048
  4. LAXANS-RATIOPHARM PICO [Concomitant]
     Dosage: UNK (7.5 MILLIGRAM PER MILLILITRE(7.5 MG/ML, 0-0-20-0, TROPFEN))
     Route: 048
  5. HYDROMORPHONE [Concomitant]
     Active Substance: HYDROMORPHONE
     Dosage: 2 MILLIGRAM (2 MG, 4-0-4-0, RETARD-TABLETTEN)
     Route: 048
  6. OMEPRAZOL                          /00661201/ [Concomitant]
     Dosage: 20 MILLIGRAM, BID
     Route: 048
  7. HYDROMORPHON ARISTO [Concomitant]
     Dosage: 1.3 MILLIGRAM, Q6H
     Route: 048
  8. COTRIM [Concomitant]
     Active Substance: SULFAMETHOXAZOLE\TRIMETHOPRIM
     Dosage: UNK UNK, QD(800/160 MG, 1-0-0-0, TABLETTEN)
     Route: 048
  9. FLUTICASONE PROPIONATE\SALMETEROL XINAFOATE [Concomitant]
     Active Substance: FLUTICASONE PROPIONATE\SALMETEROL XINAFOATE
     Dosage: UNK UNK, BID(125/25 ?G, 1-0-1-0, DOSIERAEROSOL)
     Route: 055
  10. LOSARTAN [Concomitant]
     Active Substance: LOSARTAN
     Dosage: 50 MILLIGRAM, QD(50 MG, 1-0-0-0, TABLETTEN)
     Route: 048
  11. LERCANIDIPINE [Concomitant]
     Active Substance: LERCANIDIPINE
     Dosage: 10 MILLIGRAM, TID(10 MG, 1-1-1-0, TABLETTEN)
     Route: 048
  12. METAMIZOLE SODIUM [Concomitant]
     Active Substance: METAMIZOLE SODIUM
     Dosage: 500 MILLIGRAM Q6H(500 MG, 1-1-1-1, TABLETTEN)
     Route: 048
  13. HYDROMORPHONE [Concomitant]
     Active Substance: HYDROMORPHONE
     Dosage: 4 MILLIGRAM, BID(4 MG, 1-0-1-0, RETARD-TABLETTEN)
     Route: 048

REACTIONS (4)
  - Oedema peripheral [Not Recovered/Not Resolved]
  - Pyrexia [Not Recovered/Not Resolved]
  - Productive cough [Not Recovered/Not Resolved]
  - Cough [Not Recovered/Not Resolved]
